FAERS Safety Report 9474869 (Version 3)
Quarter: 2014Q1

REPORT INFORMATION
  Report Type: Spontaneous
  Country: IT (occurrence: IT)
  Receive Date: 20130823
  Receipt Date: 20140206
  Transmission Date: 20141002
  Serious: Yes (Other)
  Sender: FDA-Public Use
  Company Number: IT-ACTAVIS-2013-15304

PATIENT
  Age: 32 Year
  Sex: Female

DRUGS (6)
  1. VENLAFAXINE (UNKNOWN) [Suspect]
     Indication: PRODUCT USED FOR UNKNOWN INDICATION
     Dosage: 2.7 G, TOTAL
     Route: 048
     Dates: start: 20130423, end: 20130423
  2. VENLAFAXINE (UNKNOWN) [Suspect]
     Dosage: UNK, UNK
     Route: 048
  3. GABAPENTIN (UNKNOWN) [Suspect]
     Indication: PRODUCT USED FOR UNKNOWN INDICATION
     Dosage: 130 DF, TOTAL
     Route: 048
     Dates: start: 20130423, end: 20130423
  4. GABAPENTIN (UNKNOWN) [Suspect]
     Dosage: UNK, UNK
     Route: 048
  5. XANAX [Suspect]
     Indication: PRODUCT USED FOR UNKNOWN INDICATION
     Dosage: 40 ML, TOTAL
     Route: 048
     Dates: start: 20130423, end: 20130423
  6. XANAX [Suspect]
     Dosage: UNK, UNK
     Route: 048

REACTIONS (2)
  - Sopor [Recovering/Resolving]
  - Drug abuse [Recovering/Resolving]
